FAERS Safety Report 22157351 (Version 1)
Quarter: 2023Q1

REPORT INFORMATION
  Report Type: Report from Study
  Country: US (occurrence: US)
  Receive Date: 20230330
  Receipt Date: 20230330
  Transmission Date: 20230417
  Serious: Yes (Other)
  Sender: FDA-Public Use
  Company Number: US-PARATEK PHARMACEUTICALS, INC.-2023PTK00028

PATIENT
  Sex: Female

DRUGS (1)
  1. NUZYRA [Suspect]
     Active Substance: OMADACYCLINE
     Indication: Mycobacterial infection
     Dosage: 300 MG, 1X/DAY
     Route: 048

REACTIONS (5)
  - Retinal degeneration [Unknown]
  - Optic nerve disorder [Unknown]
  - Eye disorder [Unknown]
  - Dysphonia [Unknown]
  - Off label use [Not Recovered/Not Resolved]
